FAERS Safety Report 4967856-5 (Version None)
Quarter: 2006Q2

REPORT INFORMATION
  Report Type: 
  Country: None (occurrence: None)
  Receive Date: 20060404
  Receipt Date: 20060328
  Transmission Date: 20061013
  Serious: No
  Sender: FDA-Public Use
  Company Number: TAP2006Q00596

PATIENT
  Age: 81 Year
  Sex: Male

DRUGS (11)
  1. LUPRON DEPOT-4 [Suspect]
     Indication: PROSTATE CANCER
     Dosage: 30 MG, 1 IN 4 M, INTRAMUSCULAR
     Route: 030
     Dates: start: 20051206
  2. METOPROLOL (METOPROLOL) [Concomitant]
  3. ADALAT XL (NIFEDIPINE) [Concomitant]
  4. COUMADIN [Concomitant]
  5. MULTIVITAMIN [Concomitant]
  6. NITRO-DUR PATCH (GLYCERYL TRINITRATE) [Concomitant]
  7. ARTHROTEC [Concomitant]
  8. FOSAMAX [Concomitant]
  9. CALCITE 500+ VIT D (CALCITE D) [Concomitant]
  10. NOVO-LORAZEM (LORAZEPAM) [Concomitant]
  11. ASPIRIN [Concomitant]

REACTIONS (1)
  - ARTERIAL OCCLUSIVE DISEASE [None]
